FAERS Safety Report 25722223 (Version 1)
Quarter: 2025Q3

REPORT INFORMATION
  Report Type: Spontaneous
  Country: US (occurrence: US)
  Receive Date: 20250825
  Receipt Date: 20250825
  Transmission Date: 20251021
  Serious: No
  Sender: BAYER HEALTHCARE LLC
  Company Number: US-BAYER-2025A112501

PATIENT

DRUGS (4)
  1. CLARITIN ALLERGY [Suspect]
     Active Substance: LORATADINE
     Indication: Nasopharyngitis
     Route: 048
  2. CLARITIN ALLERGY [Suspect]
     Active Substance: LORATADINE
     Indication: Hypersensitivity
  3. CLARITIN ALLERGY [Suspect]
     Active Substance: LORATADINE
     Indication: Rhinorrhoea
  4. CLARITIN ALLERGY [Suspect]
     Active Substance: LORATADINE
     Indication: Eye pruritus

REACTIONS (2)
  - Fatigue [Unknown]
  - Drug ineffective [Unknown]
